FAERS Safety Report 9268764 (Version 1)
Quarter: 2013Q2

REPORT INFORMATION
  Report Type: Spontaneous
  Country: US (occurrence: US)
  Receive Date: 20130502
  Receipt Date: 20130502
  Transmission Date: 20140414
  Serious: Yes (Other)
  Sender: FDA-Public Use
  Company Number: US-ALEXION PHARMACEUTICALS INC.-A201300478

PATIENT
  Sex: Female
  Weight: 80.7 kg

DRUGS (3)
  1. SOLIRIS 300MG [Suspect]
     Indication: PAROXYSMAL NOCTURNAL HAEMOGLOBINURIA
     Dosage: 600 MG, QW
     Route: 042
     Dates: start: 20121018, end: 201211
  2. SOLIRIS 300MG [Suspect]
     Dosage: 900 MG, Q2W
     Route: 042
     Dates: start: 20121117
  3. PREDNISONE [Concomitant]
     Indication: PREMEDICATION
     Dosage: UNK

REACTIONS (2)
  - Platelet count decreased [Unknown]
  - Haemoglobin abnormal [Unknown]
